FAERS Safety Report 14447941 (Version 1)
Quarter: 2018Q1

REPORT INFORMATION
  Report Type: Spontaneous
  Country: FI (occurrence: FI)
  Receive Date: 20180126
  Receipt Date: 20180126
  Transmission Date: 20180509
  Serious: Yes (Hospitalization)
  Sender: FDA-Public Use
  Company Number: FI-LPDUSPRD-20180078

PATIENT
  Age: 76 Year
  Sex: Male
  Weight: 91 kg

DRUGS (9)
  1. ACETYLSALICYLIC ACID-DIPYRIDAMOLE [Concomitant]
     Dosage: 200/25 MG
     Route: 048
     Dates: start: 20120530
  2. FERINJECT [Suspect]
     Active Substance: FERRIC CARBOXYMALTOSE
     Dosage: 1000 MG
     Route: 041
     Dates: start: 20160428
  3. PANTOPRAZOLE SODIUM SESQUHYDRATE [Concomitant]
     Route: 048
     Dates: start: 20160201
  4. BISOPROLOL FUMARATE. [Concomitant]
     Active Substance: BISOPROLOL FUMARATE
     Dosage: 2.5 MG
     Route: 048
     Dates: start: 20060927
  5. HYDROXOCOBALAMIN ACETATE. [Concomitant]
     Active Substance: HYDROXOCOBALAMIN ACETATE
     Dosage: 1 MG, 1 IN 3 M
     Route: 030
     Dates: start: 20171005
  6. LEVOTHYROXINE SODIUM. [Concomitant]
     Active Substance: LEVOTHYROXINE SODIUM
     Dosage: 25 MCG
     Route: 048
     Dates: start: 20150623
  7. CANDESARTAN CILEXETIL. [Concomitant]
     Active Substance: CANDESARTAN CILEXETIL
     Dosage: 2 MG
     Route: 048
     Dates: start: 20150323
  8. ROSUVASTATIN. [Concomitant]
     Active Substance: ROSUVASTATIN
     Dosage: 10 MG
     Route: 048
     Dates: start: 20160908
  9. ASASANTIN RETARD [Concomitant]
     Active Substance: ASPIRIN\DIPYRIDAMOLE
     Route: 065

REACTIONS (6)
  - Cough [Recovered/Resolved]
  - Pyrexia [Recovered/Resolved]
  - Vomiting [Recovered/Resolved]
  - Dyspnoea [Recovered/Resolved]
  - Myalgia [Recovered/Resolved]
  - Nausea [Recovered/Resolved]

NARRATIVE: CASE EVENT DATE: 20160428
